FAERS Safety Report 8792474 (Version 1)
Quarter: 2012Q4

REPORT INFORMATION
  Report Type: 
  Country: FR (occurrence: FR)
  Receive Date: 20120918
  Receipt Date: 20120918
  Transmission Date: 20130627
  Serious: Yes (Congenital Anomaly)
  Sender: FDA-Public Use
  Company Number: FR-BAYER-2012-094155

PATIENT
  Sex: Male

DRUGS (2)
  1. DACARBAZINE [Suspect]
     Route: 063
  2. DACARBAZINE [Suspect]
     Route: 063

REACTIONS (1)
  - Foetal growth restriction [None]
